FAERS Safety Report 9906194 (Version 1)
Quarter: 2014Q1

REPORT INFORMATION
  Report Type: Spontaneous
  Country: US (occurrence: None)
  Receive Date: 20140212
  Receipt Date: 20140212
  Transmission Date: 20141002
  Serious: Yes (Other)
  Sender: FDA-Public Use
  Company Number: None

PATIENT
  Age: 54 Year
  Sex: Female

DRUGS (1)
  1. HYDROCODONE\APAP [Suspect]
     Indication: BACK PAIN
     Dosage: 2 THREE TIMES DAILY
     Route: 048
     Dates: start: 20140206, end: 20140211

REACTIONS (3)
  - Drug effect decreased [None]
  - Dysgeusia [None]
  - Product quality issue [None]
